FAERS Safety Report 4882936-0 (Version None)
Quarter: 2006Q1

REPORT INFORMATION
  Report Type: 
  Country: None (occurrence: None)
  Receive Date: 20060113
  Receipt Date: 20051213
  Transmission Date: 20060701
  Serious: Yes (Other)
  Sender: FDA-Public Use
  Company Number: AR200601000061

PATIENT
  Sex: Male

DRUGS (2)
  1. STRATTERA [Suspect]
     Indication: ATTENTION DEFICIT/HYPERACTIVITY DISORDER
     Dosage: ORAL
     Route: 048
     Dates: start: 20051213
  2. RISPERIDONE [Concomitant]

REACTIONS (1)
  - BENIGN INTRACRANIAL HYPERTENSION [None]
